FAERS Safety Report 4667975-7 (Version None)
Quarter: 2005Q2

REPORT INFORMATION
  Report Type: 
  Country: None (occurrence: None)
  Receive Date: 20050520
  Receipt Date: 20050511
  Transmission Date: 20051028
  Serious: Yes (Other)
  Sender: FDA-Public Use
  Company Number: US-KINGPHARMUSA00001-K200500633

PATIENT
  Sex: Male

DRUGS (3)
  1. ALTACE [Suspect]
  2. LEXAPRO [Suspect]
  3. PREVACID [Suspect]

REACTIONS (1)
  - GRANULOMATOUS LIVER DISEASE [None]
